FAERS Safety Report 4787510-2 (Version None)
Quarter: 2005Q4

REPORT INFORMATION
  Report Type: 
  Country: None (occurrence: None)
  Receive Date: 20051004
  Receipt Date: 20050919
  Transmission Date: 20060501
  Serious: Yes (Hospitalization, Other)
  Sender: FDA-Public Use
  Company Number: US-JNJFOC-20050904857

PATIENT
  Sex: Female
  Weight: 56.7 kg

DRUGS (14)
  1. REMICADE [Suspect]
     Dosage: 4 VIALS
     Route: 042
  2. REMICADE [Suspect]
     Indication: RHEUMATOID ARTHRITIS
     Dosage: 4 VIALS
     Route: 042
  3. DARVOCET [Concomitant]
  4. DARVOCET [Concomitant]
     Indication: PAIN
  5. NEURONTIN [Concomitant]
  6. FLEXERIL [Concomitant]
  7. ZANAFLEX [Concomitant]
  8. XANAX [Concomitant]
  9. PLAVIX [Concomitant]
  10. PLAVIX [Concomitant]
     Indication: ANTICOAGULANT THERAPY
  11. LOPRESSOR [Concomitant]
     Indication: BLOOD PRESSURE
  12. ZOCOR [Concomitant]
  13. MOTRIN [Concomitant]
  14. ASPIRIN [Concomitant]

REACTIONS (8)
  - ANGINA UNSTABLE [None]
  - ANXIETY [None]
  - BLOOD CHOLESTEROL INCREASED [None]
  - CARDIAC ARREST [None]
  - CORONARY ARTERY DISEASE [None]
  - CORONARY ARTERY OCCLUSION [None]
  - MYOCARDIAL INFARCTION [None]
  - THERAPEUTIC RESPONSE DECREASED [None]
